FAERS Safety Report 9800003 (Version 1)
Quarter: 2014Q1

REPORT INFORMATION
  Report Type: Spontaneous
  Country: US (occurrence: US)
  Receive Date: 20140106
  Receipt Date: 20140106
  Transmission Date: 20141002
  Serious: No
  Sender: FDA-Public Use
  Company Number: US-GILEAD-2010-0030822

PATIENT
  Age: 49 Year
  Sex: Female

DRUGS (10)
  1. LETAIRIS [Suspect]
     Indication: PULMONARY ARTERIAL HYPERTENSION
     Route: 048
     Dates: start: 20080725
  2. VITAMIN B12 [Concomitant]
  3. VALACICLOVIR [Concomitant]
  4. PANCREASE [Concomitant]
  5. PREZISTA [Concomitant]
  6. NORVIR [Concomitant]
  7. ISENTRESS [Concomitant]
  8. LANOXIN [Concomitant]
  9. DILTIAZEM [Concomitant]
  10. FUROSEMIDE [Concomitant]

REACTIONS (2)
  - Fatigue [Not Recovered/Not Resolved]
  - Somnolence [Not Recovered/Not Resolved]
